FAERS Safety Report 7611935-0 (Version None)
Quarter: 2011Q3

REPORT INFORMATION
  Report Type: 
  Country: None (occurrence: None)
  Receive Date: 20110715
  Receipt Date: 20110708
  Transmission Date: 20111222
  Serious: Yes (Other)
  Sender: FDA-Public Use
  Company Number: SK-ABBOTT-11P-260-0837355-00

PATIENT

DRUGS (6)
  1. PHENYTOIN [Suspect]
     Indication: EPILEPSY
     Route: 065
  2. VALPROATE SODIUM [Suspect]
     Indication: EPILEPSY
     Route: 065
  3. CARBAMAZEPINE [Suspect]
     Indication: EPILEPSY
     Route: 065
  4. TOPIRAMATE [Suspect]
     Indication: EPILEPSY
     Route: 065
  5. LAMOTRIGINE [Suspect]
     Indication: EPILEPSY
     Route: 065
  6. VIGABATRIN [Suspect]
     Indication: EPILEPSY
     Route: 065

REACTIONS (13)
  - PANCREATITIS [None]
  - VOMITING [None]
  - SKIN DISORDER [None]
  - DYSPEPSIA [None]
  - DIPLOPIA [None]
  - ANAPHYLACTIC REACTION [None]
  - EYE DISORDER [None]
  - BLOOD DISORDER [None]
  - NAUSEA [None]
  - METABOLIC DISORDER [None]
  - FATIGUE [None]
  - TREMOR [None]
  - HEADACHE [None]
